FAERS Safety Report 9188788 (Version 3)
Quarter: 2013Q2

REPORT INFORMATION
  Report Type: Report from Study
  Country: US (occurrence: US)
  Receive Date: 20130326
  Receipt Date: 20130517
  Transmission Date: 20140414
  Serious: Yes (Hospitalization, Other)
  Sender: FDA-Public Use
  Company Number: US-ABBOTT-13P-163-1065376-00

PATIENT
  Age: 43 Year
  Sex: Male
  Weight: 109.87 kg

DRUGS (8)
  1. HUMIRA [Suspect]
     Indication: CROHN^S DISEASE
     Dates: start: 20121016, end: 20130314
  2. HUMIRA [Suspect]
     Dates: start: 20130401
  3. LOSARTAN [Concomitant]
     Indication: HYPERTENSION
     Dosage: 100 MG DAILY
  4. OMEPRAZOLE [Concomitant]
     Indication: GASTROOESOPHAGEAL REFLUX DISEASE
     Dosage: 40 MG DAILY
  5. AMLODIPINE [Concomitant]
     Indication: HYPERTENSION
     Dosage: 10 MG DAILY
  6. HYDROCHLOROTHIAZIDE [Concomitant]
     Indication: HYPERTENSION
     Dosage: 25 MG DAILY
  7. METOPROLOL [Concomitant]
     Indication: HYPERTENSION
     Dosage: 150 MG DAILY
  8. TEMAZEPAM [Concomitant]
     Indication: INSOMNIA
     Dosage: 15 MG AT BEDTIME PRN

REACTIONS (10)
  - Blood potassium decreased [Recovered/Resolved]
  - Pain [Recovered/Resolved]
  - Pneumonia [Recovered/Resolved]
  - Bronchitis [Recovered/Resolved]
  - Cough [Recovering/Resolving]
  - Paranasal sinus hypersecretion [Recovering/Resolving]
  - Drug effect decreased [Not Recovered/Not Resolved]
  - Liver function test abnormal [Recovered/Resolved]
  - Liver function test abnormal [Recovered/Resolved]
  - Skeletal injury [Recovered/Resolved]
